FAERS Safety Report 10218842 (Version 1)
Quarter: 2014Q2

REPORT INFORMATION
  Report Type: Spontaneous
  Country: US (occurrence: None)
  Receive Date: 20140604
  Receipt Date: 20140604
  Transmission Date: 20141212
  Serious: Yes (Disabling)
  Sender: FDA-Public Use
  Company Number: None

PATIENT
  Age: 62 Year
  Sex: Female
  Weight: 65.32 kg

DRUGS (2)
  1. LORAZEPAM [Suspect]
     Indication: GENERALISED ANXIETY DISORDER
     Route: 048
     Dates: start: 20140523, end: 20140603
  2. LORAZEPAM [Suspect]
     Indication: INSOMNIA
     Route: 048
     Dates: start: 20140523, end: 20140603

REACTIONS (8)
  - Tremor [None]
  - Anxiety [None]
  - Somnolence [None]
  - Product physical issue [None]
  - Product substitution issue [None]
  - Feeling jittery [None]
  - Drug withdrawal syndrome [None]
  - Product quality issue [None]
